FAERS Safety Report 7585989-4 (Version None)
Quarter: 2011Q3

REPORT INFORMATION
  Report Type: 
  Country: None (occurrence: None)
  Receive Date: 20110701
  Receipt Date: 20110623
  Transmission Date: 20111222
  Serious: Yes (Hospitalization)
  Sender: FDA-Public Use
  Company Number: US-ASTELLAS-2011US003310

PATIENT
  Sex: Female
  Weight: 88 kg

DRUGS (1)
  1. PROGRAF [Suspect]
     Indication: RENAL AND PANCREAS TRANSPLANT
     Dosage: 6 MG, BID
     Route: 048
     Dates: start: 20071001

REACTIONS (4)
  - DRUG INEFFECTIVE [None]
  - TRANSPLANT REJECTION [None]
  - OFF LABEL USE [None]
  - HOSPITALISATION [None]
